FAERS Safety Report 8534926-4 (Version None)
Quarter: 2012Q3

REPORT INFORMATION
  Report Type: 
  Country: None (occurrence: None)
  Receive Date: 20120724
  Receipt Date: 20120720
  Transmission Date: 20120928
  Serious: Yes (Hospitalization)
  Sender: FDA-Public Use
  Company Number: CZ-ROCHE-1006060

PATIENT
  Sex: Female

DRUGS (7)
  1. MABTHERA [Suspect]
     Indication: RHEUMATOID ARTHRITIS
     Route: 041
     Dates: end: 20110930
  2. MABTHERA [Suspect]
     Route: 041
  3. ARAVA [Concomitant]
  4. IBUPROFEN [Concomitant]
  5. BONIVA [Concomitant]
  6. PREDNISONE [Concomitant]
  7. CALCIUM [Concomitant]

REACTIONS (2)
  - DIABETES MELLITUS [None]
  - HYPOGLYCAEMIA [None]
